FAERS Safety Report 5867443-0 (Version None)
Quarter: 2008Q3

REPORT INFORMATION
  Report Type: 
  Country: None (occurrence: None)
  Receive Date: 20080829
  Receipt Date: 20080829
  Transmission Date: 20090109
  Serious: No
  Sender: FDA-Public Use
  Company Number: None

PATIENT
  Age: 52 Year
  Sex: Male
  Weight: 81.6 kg

DRUGS (4)
  1. DIAZEPAM [Suspect]
     Indication: ADJUSTMENT DISORDER
     Dosage: 5 MG TID PO
     Route: 048
  2. DIAZEPAM [Suspect]
     Indication: ANXIETY DISORDER
     Dosage: 5 MG TID PO
     Route: 048
  3. DIAZEPAM [Suspect]
     Indication: DEPRESSION
     Dosage: 5 MG TID PO
     Route: 048
  4. GABAPENTIN [Suspect]
     Dosage: 300 MG TID PO
     Route: 048

REACTIONS (4)
  - DEPRESSION [None]
  - INTENTIONAL OVERDOSE [None]
  - SEDATION [None]
  - SOMNOLENCE [None]
